FAERS Safety Report 16281173 (Version 1)
Quarter: 2019Q2

REPORT INFORMATION
  Report Type: Spontaneous
  Country: US (occurrence: US)
  Receive Date: 20190507
  Receipt Date: 20190507
  Transmission Date: 20190711
  Serious: Yes (Other)
  Sender: FDA-Public Use
  Company Number: US-SEBELA IRELAND LIMITED-2019SEB00140

PATIENT
  Age: 60 Year
  Sex: Male

DRUGS (1)
  1. AZATHIOPRINE. [Suspect]
     Active Substance: AZATHIOPRINE
     Indication: CROHN^S DISEASE
     Dosage: 200 MG, 1X/DAY
     Route: 065

REACTIONS (3)
  - Eosinophilic myocarditis [Recovering/Resolving]
  - Atrial fibrillation [Recovered/Resolved]
  - Hypersensitivity [Recovering/Resolving]
